FAERS Safety Report 21503157 (Version 1)
Quarter: 2022Q4

REPORT INFORMATION
  Report Type: Spontaneous
  Country: US (occurrence: None)
  Receive Date: 20221024
  Receipt Date: 20221024
  Transmission Date: 20230112
  Serious: Yes (Death, Hospitalization)
  Sender: FDA-Public Use
  Company Number: None

PATIENT
  Age: 65 Year
  Sex: Female
  Weight: 38.25 kg

DRUGS (1)
  1. PEMBROLIZUMAB [Suspect]
     Active Substance: PEMBROLIZUMAB
     Indication: Lung carcinoma cell type unspecified stage IV
     Route: 042
     Dates: start: 20220816, end: 20220816

REACTIONS (8)
  - Rash pruritic [None]
  - Rash [None]
  - Pain of skin [None]
  - Gait disturbance [None]
  - Loss of personal independence in daily activities [None]
  - Skin exfoliation [None]
  - Staphylococcal scalded skin syndrome [None]
  - Blister [None]

NARRATIVE: CASE EVENT DATE: 20220914
